FAERS Safety Report 8092187-7 (Version None)
Quarter: 2012Q1

REPORT INFORMATION
  Report Type: 
  Country: None (occurrence: None)
  Receive Date: 20120125
  Receipt Date: 20120109
  Transmission Date: 20120608
  Serious: Yes (Hospitalization)
  Sender: FDA-Public Use
  Company Number: 2012-0099

PATIENT
  Age: 71 Year
  Sex: Female

DRUGS (12)
  1. VITAMIN D [Concomitant]
  2. SYNTHROID [Concomitant]
  3. NEXIUM [Concomitant]
  4. SOMATULINE DEPOT [Suspect]
     Indication: ACROMEGALY
     Dosage: 90 MG (90 MG,1 IN 6 WK), SUBCUTANEOUS : 120 MG (120 MG,1 IN 6 WK), SUBCUTANEOUS
     Route: 058
     Dates: start: 20110416, end: 20111001
  5. SOMATULINE DEPOT [Suspect]
     Indication: ACROMEGALY
     Dosage: 90 MG (90 MG,1 IN 6 WK), SUBCUTANEOUS : 120 MG (120 MG,1 IN 6 WK), SUBCUTANEOUS
     Route: 058
     Dates: start: 20111001
  6. MULTI-VITAMINS [Concomitant]
  7. LASIX [Concomitant]
  8. URODIL (NITROFURANTOIN) [Concomitant]
  9. ASPIRIN [Concomitant]
  10. HYDROCHLOROTHIAZIDE [Concomitant]
  11. ZETIA [Concomitant]
  12. SIMVASTATIN [Concomitant]

REACTIONS (6)
  - INTERNATIONAL NORMALISED RATIO INCREASED [None]
  - CONDITION AGGRAVATED [None]
  - MEDICATION ERROR [None]
  - CHRONIC OBSTRUCTIVE PULMONARY DISEASE [None]
  - DEEP VEIN THROMBOSIS [None]
  - HYPERTENSION [None]
